FAERS Safety Report 13604303 (Version 1)
Quarter: 2017Q2

REPORT INFORMATION
  Report Type: Spontaneous
  Country: US (occurrence: US)
  Receive Date: 20170601
  Receipt Date: 20170601
  Transmission Date: 20170830
  Serious: Yes (Hospitalization, Other)
  Sender: FDA-Public Use
  Company Number: None

PATIENT
  Age: 85 Year
  Sex: Male
  Weight: 111.6 kg

DRUGS (22)
  1. SPIRONOLACTONE. [Concomitant]
     Active Substance: SPIRONOLACTONE
  2. VALARIUM [Concomitant]
  3. TRADADONE [Concomitant]
  4. SLEEPY TIME PLUS TEA WITH VALARIUM [Concomitant]
  5. DIGOXIN. [Concomitant]
     Active Substance: DIGOXIN
  6. COLASE [Concomitant]
  7. BENEFIBER [Concomitant]
     Active Substance: STARCH, WHEAT
  8. LIPITOR [Concomitant]
     Active Substance: ATORVASTATIN CALCIUM
  9. PRADAXA [Concomitant]
     Active Substance: DABIGATRAN ETEXILATE MESYLATE
  10. JANUVIA [Concomitant]
     Active Substance: SITAGLIPTIN PHOSPHATE
  11. VITAMIN D3 [Concomitant]
     Active Substance: CHOLECALCIFEROL
  12. TYLENOL [Concomitant]
     Active Substance: ACETAMINOPHEN
  13. CARVEDILOL. [Concomitant]
     Active Substance: CARVEDILOL
  14. VITAMIN C [Concomitant]
     Active Substance: ASCORBIC ACID
  15. PRADAXA [Suspect]
     Active Substance: DABIGATRAN ETEXILATE MESYLATE
     Indication: ATRIAL FIBRILLATION
     Dosage: ?          QUANTITY:1 CAPSULE(S);?
     Route: 048
     Dates: start: 20170525, end: 20170527
  16. PRADAXA [Suspect]
     Active Substance: DABIGATRAN ETEXILATE MESYLATE
     Indication: THROMBOSIS PROPHYLAXIS
     Dosage: ?          QUANTITY:1 CAPSULE(S);?
     Route: 048
     Dates: start: 20170525, end: 20170527
  17. OXYGEN. [Concomitant]
     Active Substance: OXYGEN
  18. ZOFRAN (ONDANSETRON) [Concomitant]
  19. GAS-X [Concomitant]
     Active Substance: DIMETHICONE
  20. LASIX [Concomitant]
     Active Substance: FUROSEMIDE
  21. LEVOTHYROXINE. [Concomitant]
     Active Substance: LEVOTHYROXINE
  22. MELATONIN [Concomitant]
     Active Substance: MELATONIN

REACTIONS (1)
  - Gastrointestinal haemorrhage [None]

NARRATIVE: CASE EVENT DATE: 20170525
